FAERS Safety Report 4525121-4 (Version None)
Quarter: 2004Q4

REPORT INFORMATION
  Report Type: 
  Country: None (occurrence: None)
  Receive Date: 20041117
  Receipt Date: 20031218
  Transmission Date: 20050328
  Serious: Yes (Other)
  Sender: FDA-Public Use
  Company Number: C2003-3344.01

PATIENT
  Age: 33 Year
  Sex: Female

DRUGS (2)
  1. CLOZAPINE [Suspect]
     Dosage: 200MG QD, ORAL
     Route: 048
     Dates: start: 20030830, end: 20031215
  2. QUETIAPINE [Concomitant]

REACTIONS (1)
  - LEUKOPENIA [None]
